FAERS Safety Report 4524455-7 (Version None)
Quarter: 2004Q4

REPORT INFORMATION
  Report Type: 
  Country: None (occurrence: None)
  Receive Date: 20041116
  Receipt Date: 20040817
  Transmission Date: 20050328
  Serious: No
  Sender: FDA-Public Use
  Company Number: PHEH2004US08939

PATIENT
  Age: 68 Year
  Sex: Female

DRUGS (4)
  1. GLEEVEC [Suspect]
     Indication: HEPATIC NEOPLASM
     Dosage: 400 MG, QD, ORAL
     Route: 048
     Dates: start: 20040201
  2. CIPRO [Concomitant]
  3. SYNTHROID [Concomitant]
  4. ACCUPRIL [Concomitant]

REACTIONS (2)
  - EAR INFECTION [None]
  - RENAL FUNCTION TEST ABNORMAL [None]
